FAERS Safety Report 18170680 (Version 2)
Quarter: 2020Q3

REPORT INFORMATION
  Report Type: Report from Study
  Country: US (occurrence: US)
  Receive Date: 20200819
  Receipt Date: 20200924
  Transmission Date: 20201103
  Serious: No
  Sender: FDA-Public Use
  Company Number: US-BAYER-2020-164836

PATIENT
  Age: 16 Year
  Sex: Female

DRUGS (3)
  1. NEXAVAR [Suspect]
     Active Substance: SORAFENIB
     Indication: ACUTE MYELOID LEUKAEMIA
     Dosage: 350 MG, QD (1.75TABLETS), FOR 21 DAYS EVERY 28 DAYS
     Route: 048
     Dates: start: 20200807
  2. VORICONAZOLE. [Concomitant]
     Active Substance: VORICONAZOLE
     Dosage: UNK
  3. CIPROFLOXACIN. [Concomitant]
     Active Substance: CIPROFLOXACIN
     Dosage: UNK

REACTIONS (4)
  - Product administered to patient of inappropriate age [Unknown]
  - Product use in unapproved indication [Unknown]
  - Off label use [Unknown]
  - Product use issue [None]

NARRATIVE: CASE EVENT DATE: 20200807
